FAERS Safety Report 6597647-3 (Version None)
Quarter: 2010Q1

REPORT INFORMATION
  Report Type: 
  Country: None (occurrence: None)
  Receive Date: 20100219
  Receipt Date: 20100219
  Transmission Date: 20100710
  Serious: Yes (Life-Threatening)
  Sender: FDA-Public Use
  Company Number: None

PATIENT
  Age: 12 Year
  Sex: Female

DRUGS (1)
  1. ONCASPAR [Suspect]
     Indication: ACUTE LEUKAEMIA
     Dosage: 4250 IU ONCE IV DRIP
     Route: 041
     Dates: start: 20100124, end: 20100124

REACTIONS (6)
  - BLOOD LACTIC ACID INCREASED [None]
  - COAGULOPATHY [None]
  - HYPERTENSION [None]
  - LEUKAEMIC INFILTRATION [None]
  - MENTAL STATUS CHANGES [None]
  - PYREXIA [None]
